FAERS Safety Report 7559909-2 (Version None)
Quarter: 2011Q2

REPORT INFORMATION
  Report Type: 
  Country: None (occurrence: None)
  Receive Date: 20110614
  Receipt Date: 20110603
  Transmission Date: 20111010
  Serious: Yes (Life-Threatening)
  Sender: FDA-Public Use
  Company Number: 2011MA006968

PATIENT
  Weight: 3 kg

DRUGS (1)
  1. FEVERALL [Suspect]
     Dosage: 220 MG; 1X; IV
     Route: 042

REACTIONS (1)
  - OVERDOSE [None]
